FAERS Safety Report 5462440-1 (Version None)
Quarter: 2007Q3

REPORT INFORMATION
  Report Type: 
  Country: None (occurrence: None)
  Receive Date: 20070814
  Receipt Date: 20070411
  Transmission Date: 20080115
  Serious: Yes (Other)
  Sender: FDA-Public Use
  Company Number: WAES 0702USA01198

PATIENT
  Age: 61 Year
  Sex: Male
  Weight: 108.4097 kg

DRUGS (7)
  1. FOSAMAX PLUS D [Suspect]
     Indication: OSTEOPOROSIS
     Dosage: 70MG/2800 IU/WKY/PO
     Route: 048
     Dates: start: 20070120, end: 20070206
  2. LEVOTHROID [Concomitant]
  3. PLENDIL [Concomitant]
  4. SULFAZINE [Concomitant]
  5. ALLOPURINOL [Concomitant]
  6. ATENOLOL [Concomitant]
  7. PREDNISONE [Concomitant]

REACTIONS (1)
  - SWELLING FACE [None]
